FAERS Safety Report 10097735 (Version 1)
Quarter: 2014Q2

REPORT INFORMATION
  Report Type: Spontaneous
  Country: US (occurrence: US)
  Receive Date: 20140423
  Receipt Date: 20140423
  Transmission Date: 20141212
  Serious: No
  Sender: FDA-Public Use
  Company Number: US-BIOGENIDEC-2014BI034816

PATIENT
  Age: 59 Year
  Sex: Female

DRUGS (8)
  1. TECFIDERA [Suspect]
     Indication: MULTIPLE SCLEROSIS
     Route: 048
     Dates: start: 20140325
  2. CARBAMAZEPINE ER [Concomitant]
  3. ESCITALOPRAM OXALATE [Concomitant]
  4. GABAPENTIN [Concomitant]
  5. LORAZEPAM [Concomitant]
  6. NORTRIPTYLINE HCL [Concomitant]
  7. TRAZODONE HCL [Concomitant]
  8. ZOLPIDEM TARTRATE [Concomitant]

REACTIONS (4)
  - Psychomotor hyperactivity [Unknown]
  - Flushing [Unknown]
  - Pruritus [Unknown]
  - Diarrhoea [Unknown]
